FAERS Safety Report 8148642 (Version 2)
Quarter: 2012Q4

REPORT INFORMATION
  Report Type: 
  Country: US (occurrence: US)
  Receive Date: 20110922
  Receipt Date: 20121022
  Transmission Date: 20130627
  Serious: No
  Sender: FDA-Public Use
  Company Number: US-ASTRAZENECA-2011SE12171

PATIENT
  Age: 58 Year
  Sex: Female
  Weight: 56.2 kg

DRUGS (11)
  1. SEROQUEL XR [Suspect]
     Indication: ANXIETY
     Route: 048
     Dates: start: 2009
  2. SEROQUEL XR [Suspect]
     Indication: DEPRESSION
     Route: 048
     Dates: start: 2009
  3. SEROQUEL XR [Suspect]
     Indication: SLEEP DISORDER
     Route: 048
     Dates: start: 2009
  4. SEROQUEL XR [Suspect]
     Indication: ANXIETY
     Route: 048
     Dates: start: 20110303
  5. SEROQUEL XR [Suspect]
     Indication: DEPRESSION
     Route: 048
     Dates: start: 20110303
  6. SEROQUEL XR [Suspect]
     Indication: SLEEP DISORDER
     Route: 048
     Dates: start: 20110303
  7. SEROQUEL XR [Suspect]
     Indication: ANXIETY
     Route: 048
  8. SEROQUEL XR [Suspect]
     Indication: DEPRESSION
     Route: 048
  9. SEROQUEL XR [Suspect]
     Indication: SLEEP DISORDER
     Route: 048
  10. CELEXA [Concomitant]
     Indication: DEPRESSION
  11. XANAX [Concomitant]
     Indication: ANXIETY

REACTIONS (5)
  - Tachyphrenia [Unknown]
  - Initial insomnia [Unknown]
  - Drug resistance [Unknown]
  - Intentional drug misuse [Recovering/Resolving]
  - Intentional drug misuse [Unknown]
